FAERS Safety Report 9905855 (Version 2)
Quarter: 2014Q2

REPORT INFORMATION
  Report Type: Report from Study
  Country: US (occurrence: US)
  Receive Date: 20140218
  Receipt Date: 20140404
  Transmission Date: 20141212
  Serious: Yes (Hospitalization)
  Sender: FDA-Public Use
  Company Number: US-JNJFOC-20140209938

PATIENT
  Age: 15 Year
  Sex: Female
  Weight: 44 kg

DRUGS (8)
  1. REMICADE [Suspect]
     Indication: COLITIS ULCERATIVE
     Dosage: APPROXIMATELY 10MG/KG
     Route: 042
  2. REMICADE [Suspect]
     Indication: COLITIS ULCERATIVE
     Route: 042
     Dates: start: 20100901
  3. REMICADE [Suspect]
     Indication: COLITIS ULCERATIVE
     Route: 042
     Dates: start: 201206
  4. PREDNISONE [Concomitant]
     Route: 065
  5. ZYRTEC [Concomitant]
     Route: 065
  6. ALBUTEROL [Concomitant]
     Route: 065
  7. LEXAPRO [Concomitant]
     Route: 065
  8. VYVANSE [Concomitant]
     Route: 048

REACTIONS (1)
  - Colitis ulcerative [Recovered/Resolved]
